FAERS Safety Report 6375988-2 (Version None)
Quarter: 2009Q3

REPORT INFORMATION
  Report Type: 
  Country: None (occurrence: None)
  Receive Date: 20090921
  Receipt Date: 20090908
  Transmission Date: 20100115
  Serious: Yes (Congenital Anomaly)
  Sender: FDA-Public Use
  Company Number: ADR24582009

PATIENT
  Sex: Female

DRUGS (1)
  1. CIPROFLOXACIN [Suspect]
     Indication: LOWER RESPIRATORY TRACT INFECTION
     Dosage: 250 MG 2/1 DAY TRANSPLACENTAL
     Route: 064
     Dates: start: 20070215, end: 20070219

REACTIONS (2)
  - ABNORMAL PALMAR/PLANTAR CREASES [None]
  - MATERNAL DRUGS AFFECTING FOETUS [None]
